FAERS Safety Report 11336430 (Version 3)
Quarter: 2015Q3

REPORT INFORMATION
  Report Type: Spontaneous
  Country: DE (occurrence: DE)
  Receive Date: 20150804
  Receipt Date: 20150901
  Transmission Date: 20151125
  Serious: Yes (Hospitalization, Other)
  Sender: FDA-Public Use
  Company Number: DE-UCBSA-2015024315

PATIENT
  Age: 47 Year
  Sex: Female
  Weight: 130 kg

DRUGS (4)
  1. KEPPRA [Suspect]
     Active Substance: LEVETIRACETAM
     Indication: PRODUCT USED FOR UNKNOWN INDICATION
     Dosage: UNK UNK, ONE TIME DOSE
     Route: 048
     Dates: start: 201507, end: 201507
  2. BACLOFEN. [Suspect]
     Active Substance: BACLOFEN
     Indication: PRODUCT USED FOR UNKNOWN INDICATION
     Dosage: UNK, ONE TIME DOSE
     Route: 048
     Dates: start: 201507, end: 201507
  3. IBUPROFEN. [Suspect]
     Active Substance: IBUPROFEN
     Indication: PRODUCT USED FOR UNKNOWN INDICATION
     Dosage: UNK: STRENGTH: 400 (UNIT UNKNOWN)
     Route: 048
     Dates: start: 201507, end: 201507
  4. LYRICA [Suspect]
     Active Substance: PREGABALIN
     Indication: PRODUCT USED FOR UNKNOWN INDICATION
     Dosage: 75MG, ONE TIME DOSE
     Route: 048
     Dates: start: 201507, end: 201507

REACTIONS (5)
  - Tachycardia [Recovered/Resolved]
  - Intentional product misuse [Unknown]
  - Coma [Recovered/Resolved]
  - Seizure [Recovered/Resolved]
  - Sensory disturbance [Recovered/Resolved]

NARRATIVE: CASE EVENT DATE: 201507
